FAERS Safety Report 9095366 (Version 2)
Quarter: 2013Q1

REPORT INFORMATION
  Report Type: Spontaneous
  Country: BR (occurrence: BR)
  Receive Date: 20130220
  Receipt Date: 20130326
  Transmission Date: 20140127
  Serious: Yes (Death, Hospitalization)
  Sender: FDA-Public Use
  Company Number: PHHY2013BR016399

PATIENT
  Sex: Female

DRUGS (2)
  1. DIOVAN [Suspect]
     Indication: CARDIAC DISORDER
     Dosage: 1 DF BID, (1 TABLET IN THE MORNING AND 1AT NIGHT)
  2. D CALCIUM [Concomitant]
     Indication: OSTEOPOROSIS
     Dosage: 1 DF, PER DAY
     Route: 048

REACTIONS (2)
  - Pneumonia [Fatal]
  - Dyspnoea [Fatal]
